FAERS Safety Report 16915607 (Version 1)
Quarter: 2019Q4

REPORT INFORMATION
  Report Type: Spontaneous
  Country: US (occurrence: US)
  Receive Date: 20191013
  Receipt Date: 20191013
  Transmission Date: 20200122
  Serious: Yes (Other)
  Sender: FDA-Public Use
  Company Number: None

PATIENT
  Age: 32 Year
  Sex: Female
  Weight: 80.1 kg

DRUGS (1)
  1. BOTOX [Suspect]
     Active Substance: ONABOTULINUMTOXINA
     Indication: HYPERHIDROSIS
     Route: 030
     Dates: start: 20190807, end: 20190807

REACTIONS (13)
  - Dizziness [None]
  - Headache [None]
  - Muscular weakness [None]
  - Panic attack [None]
  - Neck pain [None]
  - Paraesthesia [None]
  - Eye pain [None]
  - Vertigo [None]
  - Nausea [None]
  - Back pain [None]
  - Toothache [None]
  - Hypoaesthesia [None]
  - Anxiety [None]

NARRATIVE: CASE EVENT DATE: 20190807
